FAERS Safety Report 16531226 (Version 2)
Quarter: 2019Q3

REPORT INFORMATION
  Report Type: Spontaneous
  Country: JP (occurrence: JP)
  Receive Date: 20190705
  Receipt Date: 20190723
  Transmission Date: 20191004
  Serious: Yes (Other)
  Sender: FDA-Public Use
  Company Number: JP-TEVA-2019-JP-1073505

PATIENT
  Age: 78 Year
  Sex: Female

DRUGS (6)
  1. NEXIUM [Concomitant]
     Active Substance: ESOMEPRAZOLE MAGNESIUM
  2. AZILECT [Suspect]
     Active Substance: RASAGILINE MESYLATE
     Indication: PARKINSON^S DISEASE
     Dosage: 1 MILLIGRAM DAILY;
     Route: 048
     Dates: start: 20190610, end: 20190615
  3. NAUZELIN [Concomitant]
     Active Substance: DOMPERIDONE
  4. MEILAX [Concomitant]
     Active Substance: ETHYL LOFLAZEPATE
  5. SHAKUYAKUKANZOTO [Concomitant]
     Active Substance: HERBALS
  6. LEVODOPA [Concomitant]
     Active Substance: LEVODOPA
     Route: 065

REACTIONS (1)
  - Bradykinesia [Recovered/Resolved]

NARRATIVE: CASE EVENT DATE: 20190615
